FAERS Safety Report 4516601-6 (Version None)
Quarter: 2004Q4

REPORT INFORMATION
  Report Type: 
  Country: None (occurrence: None)
  Receive Date: 20041202
  Receipt Date: 20041119
  Transmission Date: 20050328
  Serious: Yes (Hospitalization)
  Sender: FDA-Public Use
  Company Number: JP-JNJFOC-20040405814

PATIENT
  Age: 48 Year
  Sex: Male

DRUGS (4)
  1. TAVANIC [Suspect]
     Indication: DRUG USE FOR UNKNOWN INDICATION
  2. AUGMENTIN '125' [Suspect]
     Route: 065
  3. AUGMENTIN '125' [Suspect]
     Indication: DRUG USE FOR UNKNOWN INDICATION
     Route: 065
  4. ZYVOXID [Suspect]
     Indication: OSTEITIS
     Route: 049

REACTIONS (1)
  - NEUROPATHY PERIPHERAL [None]
